FAERS Safety Report 9185818 (Version 1)
Quarter: 2013Q1

REPORT INFORMATION
  Report Type: Spontaneous
  Country: IT (occurrence: IT)
  Receive Date: 20130325
  Receipt Date: 20130325
  Transmission Date: 20140127
  Serious: Yes (Life-Threatening, Hospitalization)
  Sender: FDA-Public Use
  Company Number: IT-TEVA-391876ISR

PATIENT
  Age: 70 Year
  Sex: Male

DRUGS (6)
  1. FLUOROURACIL [Suspect]
     Indication: COLON CANCER
     Dosage: 5600 MILLIGRAM DAILY;
     Route: 042
     Dates: start: 20120528, end: 20120528
  2. FLUOROURACIL [Suspect]
     Dosage: DOSE WAS REDUCED TO 75%
     Route: 042
     Dates: start: 20120907, end: 20120907
  3. IRINOTECAN [Suspect]
     Indication: COLON CANCER
     Route: 042
     Dates: start: 20120528, end: 20120528
  4. IRINOTECAN [Suspect]
     Dosage: DOSE WAS REDUCED TO 75%
     Route: 042
     Dates: start: 20120907, end: 20120907
  5. BEVACIZUMAB [Suspect]
     Indication: COLON CANCER
     Dosage: 425 MILLIGRAM DAILY;
     Route: 042
     Dates: start: 20120528, end: 20120528
  6. BEVACIZUMAB [Suspect]
     Dosage: DOSE WAS REDUCED TO 75%
     Route: 042
     Dates: start: 20120907, end: 20120907

REACTIONS (2)
  - Atrial fibrillation [Recovered/Resolved]
  - Atrial fibrillation [Recovered/Resolved]
